FAERS Safety Report 25366987 (Version 1)
Quarter: 2025Q2

REPORT INFORMATION
  Report Type: Spontaneous
  Country: GB (occurrence: GB)
  Receive Date: 20250528
  Receipt Date: 20250528
  Transmission Date: 20250717
  Serious: Yes (Life-Threatening, Other)
  Sender: ACCORD
  Company Number: None

PATIENT
  Age: 66 Year
  Sex: Male

DRUGS (20)
  1. CLOPIDOGREL [Suspect]
     Active Substance: CLOPIDOGREL BISULFATE
     Indication: Product used for unknown indication
     Dosage: 75 MG TABLETS ONE TO BE TAKEN DAILY
  2. ASPIRIN [Suspect]
     Active Substance: ASPIRIN
     Indication: Product used for unknown indication
  3. SITAGLIPTIN [Concomitant]
     Active Substance: SITAGLIPTIN
  4. FUROSEMIDE [Concomitant]
     Active Substance: FUROSEMIDE
  5. ALBUTEROL [Concomitant]
     Active Substance: ALBUTEROL
  6. HYPROMELLOSES [Concomitant]
     Active Substance: HYPROMELLOSES
  7. HYDROXYCHLOROQUINE [Concomitant]
     Active Substance: HYDROXYCHLOROQUINE
  8. CARBOCYSTEINE [Concomitant]
     Active Substance: CARBOCYSTEINE
  9. FERROUS FUMARATE [Concomitant]
     Active Substance: FERROUS FUMARATE
  10. TRAMADOL [Concomitant]
     Active Substance: TRAMADOL
  11. ACETAMINOPHEN [Concomitant]
     Active Substance: ACETAMINOPHEN
  12. METFORMIN [Concomitant]
     Active Substance: METFORMIN HYDROCHLORIDE
  13. LANSOPRAZOLE [Concomitant]
     Active Substance: LANSOPRAZOLE
  14. DAPAGLIFLOZIN [Concomitant]
     Active Substance: DAPAGLIFLOZIN
  15. BISOPROLOL [Concomitant]
     Active Substance: BISOPROLOL
  16. EPILIM [Concomitant]
     Active Substance: VALPROATE SODIUM
  17. PRAVASTATIN [Concomitant]
     Active Substance: PRAVASTATIN
  18. LOSARTAN [Concomitant]
     Active Substance: LOSARTAN
  19. EPILIM [Concomitant]
     Active Substance: VALPROATE SODIUM
  20. LOSARTAN [Concomitant]
     Active Substance: LOSARTAN

REACTIONS (2)
  - Haemoptysis [Recovered/Resolved]
  - Contusion [Recovered/Resolved]
